FAERS Safety Report 5022668-1 (Version None)
Quarter: 2006Q2

REPORT INFORMATION
  Report Type: 
  Country: None (occurrence: None)
  Receive Date: 20060609
  Receipt Date: 20060313
  Transmission Date: 20061013
  Serious: Yes (Hospitalization)
  Sender: FDA-Public Use
  Company Number: 2006UW04062

PATIENT
  Age: 77 Year
  Sex: Male
  Weight: 60 kg

DRUGS (9)
  1. IRESSA [Suspect]
     Indication: METASTATIC RENAL CELL CARCINOMA
     Route: 048
     Dates: start: 20051116, end: 20051213
  2. IRESSA [Suspect]
     Route: 048
     Dates: start: 20051228
  3. GLIPIZIDE [Concomitant]
     Route: 048
     Dates: start: 20050913
  4. DETROL [Concomitant]
     Route: 048
     Dates: start: 20050913, end: 20060124
  5. HYTRIN [Concomitant]
     Route: 048
     Dates: start: 20050913
  6. NEXIUM [Concomitant]
     Route: 048
     Dates: start: 20050913
  7. COLACE [Concomitant]
     Route: 048
     Dates: start: 20051115, end: 20060124
  8. FIBERCON [Concomitant]
     Route: 048
     Dates: start: 20051213
  9. CENTRUM [Concomitant]
     Route: 048
     Dates: start: 20050913

REACTIONS (3)
  - DIVERTICULUM INTESTINAL [None]
  - HAEMORRHOIDAL HAEMORRHAGE [None]
  - RECTAL HAEMORRHAGE [None]
